FAERS Safety Report 5650587-6 (Version None)
Quarter: 2008Q1

REPORT INFORMATION
  Report Type: 
  Country: None (occurrence: None)
  Receive Date: 20080304
  Receipt Date: 20080304
  Transmission Date: 20080703
  Serious: Yes (Other)
  Sender: FDA-Public Use
  Company Number: None

PATIENT
  Age: 53 Year
  Sex: Female
  Weight: 88.4514 kg

DRUGS (1)
  1. CYMBALTA [Suspect]
     Dosage: 60MG  1X/DAY  PO  (DURATION: SEVERAL YEARS)
     Route: 048

REACTIONS (12)
  - ABNORMAL BEHAVIOUR [None]
  - ANGER [None]
  - DYSGEUSIA [None]
  - EYE DISORDER [None]
  - FEELING JITTERY [None]
  - FOOD CRAVING [None]
  - MIDDLE INSOMNIA [None]
  - NAUSEA [None]
  - RESTLESSNESS [None]
  - SLEEP PARALYSIS [None]
  - TINNITUS [None]
  - WITHDRAWAL SYNDROME [None]
